FAERS Safety Report 11370275 (Version 2)
Quarter: 2015Q4

REPORT INFORMATION
  Report Type: Spontaneous
  Country: FR (occurrence: FR)
  Receive Date: 20150812
  Receipt Date: 20151008
  Transmission Date: 20160304
  Serious: Yes (Other)
  Sender: FDA-Public Use
  Company Number: FR-JNJFOC-20150806611

PATIENT
  Age: 74 Year
  Sex: Male
  Weight: 70 kg

DRUGS (4)
  1. INFLIXIMAB, RECOMBINANT [Suspect]
     Active Substance: INFLIXIMAB
     Indication: SARCOIDOSIS
     Dosage: 3 OR 5 MG EVERY 0,2,6 AND THEN  EVERY 8 WEEKS
     Route: 042
     Dates: start: 201101, end: 201104
  2. PREDNISONE. [Concomitant]
     Active Substance: PREDNISONE
     Indication: SARCOIDOSIS
     Route: 048
     Dates: start: 200902
  3. INFLIXIMAB, RECOMBINANT [Suspect]
     Active Substance: INFLIXIMAB
     Indication: CARDIAC SARCOIDOSIS
     Dosage: 3 OR 5 MG EVERY 0,2,6 AND THEN  EVERY 8 WEEKS
     Route: 042
     Dates: start: 201101, end: 201104
  4. PREDNISONE. [Concomitant]
     Active Substance: PREDNISONE
     Indication: CARDIAC SARCOIDOSIS
     Route: 048
     Dates: start: 200902

REACTIONS (3)
  - Therapeutic response unexpected [Unknown]
  - Product use issue [Unknown]
  - Atypical mycobacterial infection [Recovered/Resolved]

NARRATIVE: CASE EVENT DATE: 201104
